FAERS Safety Report 6875337-7 (Version None)
Quarter: 2010Q3

REPORT INFORMATION
  Report Type: 
  Country: None (occurrence: None)
  Receive Date: 20100727
  Receipt Date: 20070910
  Transmission Date: 20110219
  Serious: Yes (Death, Hospitalization)
  Sender: FDA-Public Use
  Company Number: US-PFIZER INC-2006120415

PATIENT
  Sex: Female
  Weight: 112 kg

DRUGS (8)
  1. CELEBREX [Suspect]
     Indication: ARTHRITIS
     Route: 048
     Dates: start: 19990212, end: 19990412
  2. VIOXX [Suspect]
     Indication: ARTHRITIS
     Route: 048
     Dates: start: 19990520, end: 20010815
  3. LANOXIN [Concomitant]
     Indication: CARDIAC DISORDER
     Dates: start: 19981030, end: 19991123
  4. IMDUR [Concomitant]
     Indication: HYPERTENSION
     Dates: start: 19981104, end: 19991122
  5. AMITRIPTYLINE HYDROCHLORIDE [Concomitant]
     Dates: start: 19981106, end: 19991221
  6. ATENOLOL [Concomitant]
     Indication: CARDIAC DISORDER
     Dates: start: 19981211, end: 20010706
  7. LIPITOR [Concomitant]
     Indication: BLOOD CHOLESTEROL INCREASED
     Dates: start: 19981211, end: 19991123
  8. NITROSTAT [Concomitant]
     Indication: CARDIAC DISORDER
     Dates: start: 19990424, end: 19990917

REACTIONS (1)
  - MYOCARDIAL INFARCTION [None]
